FAERS Safety Report 15496863 (Version 1)
Quarter: 2018Q4

REPORT INFORMATION
  Report Type: Spontaneous
  Country: ES (occurrence: ES)
  Receive Date: 20181015
  Receipt Date: 20181015
  Transmission Date: 20190205
  Serious: Yes (Hospitalization, Other)
  Sender: FDA-Public Use
  Company Number: ES-HETERO CORPORATE-HET2017ES00460

PATIENT
  Age: 67 Year
  Sex: Male

DRUGS (2)
  1. LINEZOLID. [Suspect]
     Active Substance: LINEZOLID
     Indication: POSTOPERATIVE WOUND INFECTION
     Dosage: 0.6 G, BID
     Route: 048
     Dates: start: 20170123, end: 20170206
  2. LINEZOLID TEVA [Concomitant]
     Indication: POSTOPERATIVE WOUND INFECTION
     Dosage: 0.6 G, BID
     Route: 042
     Dates: start: 20170120, end: 20170123

REACTIONS (1)
  - Diplopia [Recovered/Resolved]

NARRATIVE: CASE EVENT DATE: 20170206
